FAERS Safety Report 7733494-4 (Version None)
Quarter: 2011Q3

REPORT INFORMATION
  Report Type: 
  Country: None (occurrence: None)
  Receive Date: 20110907
  Receipt Date: 20110907
  Transmission Date: 20111222
  Serious: Yes (Hospitalization)
  Sender: FDA-Public Use
  Company Number: None

PATIENT
  Sex: Female
  Weight: 68.2 kg

DRUGS (3)
  1. DIVALPROEX SODIUM [Suspect]
     Indication: MANIA
     Dosage: 1000MG
     Route: 048
     Dates: start: 20110815, end: 20110824
  2. HALOPERIDOL [Concomitant]
     Indication: PSYCHOTIC DISORDER
     Dosage: 5MG
     Route: 048
     Dates: start: 20110808, end: 20110825
  3. HALOPERIDOL [Concomitant]
     Indication: MANIA
     Dosage: 5MG
     Route: 048
     Dates: start: 20110808, end: 20110825

REACTIONS (2)
  - NEUTROPENIA [None]
  - REFUSAL OF TREATMENT BY PATIENT [None]
